FAERS Safety Report 19312920 (Version 1)
Quarter: 2021Q2

REPORT INFORMATION
  Report Type: Spontaneous
  Country: US (occurrence: US)
  Receive Date: 20210526
  Receipt Date: 20210526
  Transmission Date: 20210717
  Serious: Yes (Life-Threatening, Hospitalization, Other)
  Sender: FDA-Public Use
  Company Number: None

PATIENT
  Age: 64 Year
  Sex: Female
  Weight: 94.5 kg

DRUGS (1)
  1. SPIRIVA [Suspect]
     Active Substance: TIOTROPIUM BROMIDE MONOHYDRATE
     Indication: CHRONIC OBSTRUCTIVE PULMONARY DISEASE
     Dosage: ?          QUANTITY:1 CAPSULE(S);?
     Route: 055
     Dates: start: 20210521

REACTIONS (7)
  - Hypertension [None]
  - Choking [None]
  - Cough [None]
  - Diplopia [None]
  - Pain in extremity [None]
  - Muscle spasms [None]
  - Urinary retention [None]

NARRATIVE: CASE EVENT DATE: 20210525
